FAERS Safety Report 22016841 (Version 2)
Quarter: 2023Q1

REPORT INFORMATION
  Report Type: Report from Study
  Country: AU (occurrence: AU)
  Receive Date: 20230221
  Receipt Date: 20230303
  Transmission Date: 20230418
  Serious: Yes (Hospitalization)
  Sender: FDA-Public Use
  Company Number: AU-JNJFOC-20221210529

PATIENT
  Age: 70 Year
  Sex: Male
  Weight: 78.9 kg

DRUGS (18)
  1. BORTEZOMIB [Suspect]
     Active Substance: BORTEZOMIB
     Indication: Plasma cell myeloma
     Dosage: 1.3 MILLIGRAM/SQ. METER
     Route: 058
     Dates: start: 20221115, end: 20221125
  2. DEXAMETHASONE [Suspect]
     Active Substance: DEXAMETHASONE
     Indication: Plasma cell myeloma
     Dosage: 20 MILLIGRAM
     Route: 048
     Dates: start: 20221115, end: 20221126
  3. LENALIDOMIDE [Suspect]
     Active Substance: LENALIDOMIDE
     Indication: Plasma cell myeloma
     Dosage: 25 MILLIGRAM
     Route: 048
     Dates: start: 20221115, end: 20221128
  4. VENTOLIN [Concomitant]
     Active Substance: ALBUTEROL SULFATE
     Indication: Asthma
     Dosage: 100 MICROGRAM
     Route: 055
     Dates: start: 19800101
  5. SERETIDE [Concomitant]
     Active Substance: FLUTICASONE PROPIONATE\SALMETEROL XINAFOATE
     Indication: Asthma
     Dosage: UNK
     Route: 055
     Dates: start: 19900101
  6. METFORMIN\SITAGLIPTIN [Concomitant]
     Active Substance: METFORMIN\SITAGLIPTIN
     Indication: Type 2 diabetes mellitus
     Dosage: UNK UNK, QD
     Route: 048
     Dates: start: 19930101
  7. ASPIRIN [Concomitant]
     Active Substance: ASPIRIN
     Indication: Anticoagulant therapy
     Dosage: 100 MILLIGRAM, QD
     Route: 048
     Dates: start: 19980101
  8. GLICLAZIDE [Concomitant]
     Active Substance: GLICLAZIDE
     Indication: Type 2 diabetes mellitus
     Dosage: 60 MILLIGRAM, QD
     Route: 048
     Dates: start: 19980101
  9. ATORVASTATIN [Concomitant]
     Active Substance: ATORVASTATIN
     Indication: Peripheral arterial occlusive disease
     Dosage: 40 MILLIGRAM, QD
     Route: 048
     Dates: start: 20210101
  10. INDAPAMIDE\PERINDOPRIL ERBUMINE [Concomitant]
     Active Substance: INDAPAMIDE\PERINDOPRIL ERBUMINE
     Indication: Hypertension
     Dosage: UNK UNK, QD
     Route: 048
     Dates: start: 20210101
  11. METFORMIN [Concomitant]
     Active Substance: METFORMIN HYDROCHLORIDE
     Indication: Type 2 diabetes mellitus
     Dosage: 500 MILLIGRAM, QD
     Route: 048
     Dates: start: 20220101
  12. TAPENTADOL [Concomitant]
     Active Substance: TAPENTADOL
     Indication: Pain
     Route: 048
     Dates: start: 20220101
  13. CELEBREX [Concomitant]
     Active Substance: CELECOXIB
     Indication: Lumbar spinal stenosis
     Dosage: 200 MILLIGRAM, QD
     Route: 048
     Dates: start: 20220101
  14. SULFAMETHOXAZOLE\TRIMETHOPRIM [Concomitant]
     Active Substance: SULFAMETHOXAZOLE\TRIMETHOPRIM
     Indication: Antifungal prophylaxis
     Dosage: UNK UNK, QD
     Route: 048
     Dates: start: 20221114
  15. VALACYCLOVIR HYDROCHLORIDE [Concomitant]
     Active Substance: VALACYCLOVIR HYDROCHLORIDE
     Indication: Antiviral prophylaxis
     Dosage: 500 MILLIGRAM, QD
     Route: 048
     Dates: start: 20221114
  16. ALLOPURINOL [Concomitant]
     Active Substance: ALLOPURINOL
     Indication: Prophylaxis
     Dosage: 300 MILLIGRAM, QD
     Route: 048
     Dates: start: 20221114
  17. METFORMIN\SITAGLIPTIN [Concomitant]
     Active Substance: METFORMIN\SITAGLIPTIN
     Indication: Type 2 diabetes mellitus
     Dosage: UNK UNK, QD
     Route: 048
     Dates: start: 19930201
  18. INDAPAMIDE\PERINDOPRIL [Concomitant]
     Active Substance: INDAPAMIDE\PERINDOPRIL
     Indication: Hypertension
     Dosage: UNK UNK, QD
     Route: 048
     Dates: start: 20210101

REACTIONS (1)
  - Alanine aminotransferase increased [Recovered/Resolved]

NARRATIVE: CASE EVENT DATE: 20221206
